FAERS Safety Report 14502375 (Version 1)
Quarter: 2018Q1

REPORT INFORMATION
  Report Type: Spontaneous
  Country: SK (occurrence: SK)
  Receive Date: 20180208
  Receipt Date: 20180208
  Transmission Date: 20180509
  Serious: Yes (Other)
  Sender: FDA-Public Use
  Company Number: SK-AXELLIA-001376

PATIENT
  Sex: Male

DRUGS (12)
  1. LINEZOLID. [Suspect]
     Active Substance: LINEZOLID
     Indication: STAPHYLOCOCCAL INFECTION
  2. FLUDARABINE [Concomitant]
     Active Substance: FLUDARABINE PHOSPHATE
     Indication: ACUTE LYMPHOCYTIC LEUKAEMIA
  3. TYGACIL [Suspect]
     Active Substance: TIGECYCLINE
     Indication: INTERSTITIAL LUNG DISEASE
  4. GRANULOCYTE COLONY STIMULATING [Concomitant]
     Active Substance: GRANULOCYTE COLONY-STIMULATING FACTOR NOS
     Indication: ACUTE LYMPHOCYTIC LEUKAEMIA
  5. MEROPENEM. [Suspect]
     Active Substance: MEROPENEM
     Indication: STAPHYLOCOCCAL INFECTION
  6. ANIDULAFUNGIN [Suspect]
     Active Substance: ANIDULAFUNGIN
     Indication: STAPHYLOCOCCAL INFECTION
  7. CIPROFLOXACIN. [Suspect]
     Active Substance: CIPROFLOXACIN
     Indication: STAPHYLOCOCCAL INFECTION
  8. CASPOFUNGIN [Suspect]
     Active Substance: CASPOFUNGIN
     Indication: INTERSTITIAL LUNG DISEASE
  9. POSACONAZOLE [Suspect]
     Active Substance: POSACONAZOLE
     Indication: INTERSTITIAL LUNG DISEASE
  10. VORICONAZOLE. [Suspect]
     Active Substance: VORICONAZOLE
     Indication: BRONCHOPULMONARY ASPERGILLOSIS
  11. CYTARABINE/CYTARABINE HYDROCHLORIDE/CYTARABINE OCFOSFATE [Suspect]
     Active Substance: CYTARABINE
     Indication: ACUTE LYMPHOCYTIC LEUKAEMIA
  12. IDARUBICIN [Concomitant]
     Active Substance: IDARUBICIN
     Indication: ACUTE LYMPHOCYTIC LEUKAEMIA

REACTIONS (9)
  - Bacteraemia [Unknown]
  - Anuria [Unknown]
  - Bronchopulmonary aspergillosis [Unknown]
  - Respiratory failure [Unknown]
  - Sepsis [Unknown]
  - Thrombosis [Unknown]
  - Cellulitis [Unknown]
  - Generalised oedema [Unknown]
  - Hypogonadism [Unknown]
